FAERS Safety Report 10990820 (Version 2)
Quarter: 2015Q2

REPORT INFORMATION
  Report Type: Spontaneous
  Country: US (occurrence: US)
  Receive Date: 20150406
  Receipt Date: 20150612
  Transmission Date: 20150821
  Serious: Yes (Other)
  Sender: FDA-Public Use
  Company Number: US-BAYER-2015-087531

PATIENT
  Age: 29 Year
  Sex: Female
  Weight: 145.58 kg

DRUGS (3)
  1. MIRENA [Suspect]
     Active Substance: LEVONORGESTREL
     Indication: CONTRACEPTION
     Dosage: 20 MCG/24HR, CONT
     Route: 015
     Dates: start: 20131120, end: 20150422
  2. MIRENA [Suspect]
     Active Substance: LEVONORGESTREL
     Indication: MENORRHAGIA
     Dosage: 20 MCG/24HR, CONT
     Route: 015
     Dates: start: 20150422
  3. MIRENA [Suspect]
     Active Substance: LEVONORGESTREL
     Indication: PELVIC PAIN

REACTIONS (7)
  - Groin infection [None]
  - Abdominal pain [None]
  - Genital haemorrhage [None]
  - Device dislocation [None]
  - Vaginal discharge [None]
  - Uterine leiomyoma [None]
  - Pelvic pain [None]

NARRATIVE: CASE EVENT DATE: 20150324
